FAERS Safety Report 5833666-X (Version None)
Quarter: 2008Q3

REPORT INFORMATION
  Report Type: 
  Country: None (occurrence: None)
  Receive Date: 20080801
  Receipt Date: 20080722
  Transmission Date: 20090109
  Serious: No
  Sender: FDA-Public Use
  Company Number: SPI200800374

PATIENT
  Age: 62 Year
  Sex: Female
  Weight: 68 kg

DRUGS (6)
  1. AMITIZA [Suspect]
     Indication: CONSTIPATION
     Dosage: 24 MCG, QD, ORAL
     Route: 048
     Dates: start: 20080101, end: 20080101
  2. MILK OF MAGNESIA TAB [Concomitant]
  3. ENEMAS [Concomitant]
  4. METFORMIN HCL [Concomitant]
  5. GLYBURIDE [Concomitant]
  6. TUMS /00108001/ (CALCIUM CARBONATE) [Concomitant]

REACTIONS (13)
  - ANXIETY [None]
  - BLOOD GLUCOSE INCREASED [None]
  - CHOKING SENSATION [None]
  - COUGH [None]
  - DRUG INEFFECTIVE [None]
  - DYSPEPSIA [None]
  - DYSPNOEA [None]
  - FEELING ABNORMAL [None]
  - HEART RATE INCREASED [None]
  - INSOMNIA [None]
  - LUNG DISORDER [None]
  - MALAISE [None]
  - PARAESTHESIA [None]
